FAERS Safety Report 6793864-8 (Version None)
Quarter: 2010Q2

REPORT INFORMATION
  Report Type: 
  Country: None (occurrence: None)
  Receive Date: 20100624
  Receipt Date: 20090604
  Transmission Date: 20101027
  Serious: No
  Sender: FDA-Public Use
  Company Number: US-PFIZER INC-2009150640

PATIENT
  Sex: Female
  Weight: 72.6 kg

DRUGS (3)
  1. GEODON [Suspect]
     Indication: ANXIETY
     Dosage: 40 MG, 2X/DAY
     Dates: start: 20070407
  2. GEODON [Suspect]
     Indication: DEPRESSION
     Dosage: 80 MG, 2X/DAY
     Dates: end: 20080530
  3. DRUG, UNSPECIFIED [Concomitant]

REACTIONS (1)
  - DRUG INEFFECTIVE [None]
